FAERS Safety Report 15002663 (Version 6)
Quarter: 2018Q4

REPORT INFORMATION
  Report Type: Report from Study
  Country: US (occurrence: US)
  Receive Date: 20180612
  Receipt Date: 20181106
  Transmission Date: 20190204
  Serious: Yes (Death, Hospitalization, Disabling, Other)
  Sender: FDA-Public Use
  Company Number: US-ACTELION-A-NJ2018-169218

PATIENT
  Age: 73 Year
  Sex: Male
  Weight: 94.33 kg

DRUGS (64)
  1. ALLOPURINOL. [Concomitant]
     Active Substance: ALLOPURINOL
     Dosage: 1 DF, UNK
     Dates: start: 20180328, end: 20180626
  2. ASPIRIN 81 [Concomitant]
     Active Substance: ASPIRIN
     Dosage: 81 MG, QD
     Dates: start: 20090818, end: 20180708
  3. FERROUS SULFATE. [Concomitant]
     Active Substance: FERROUS SULFATE
     Dosage: 325 MG, QD
     Dates: start: 20170928, end: 20180720
  4. LASIX [Concomitant]
     Active Substance: FUROSEMIDE
  5. REVATIO [Concomitant]
     Active Substance: SILDENAFIL CITRATE
     Dosage: 20 MG, TID
     Route: 048
     Dates: start: 20180104, end: 20180720
  6. DOCUSATE SODIUM. [Concomitant]
     Active Substance: DOCUSATE SODIUM
     Dosage: 100 MG, BID
     Route: 048
  7. IPRATROPIUM BROMIDE AND ALBUTEROL SULFATE [Concomitant]
     Active Substance: ALBUTEROL SULFATE\IPRATROPIUM BROMIDE
  8. PRAVACHOL [Concomitant]
     Active Substance: PRAVASTATIN SODIUM
     Dosage: 40 MG, QD
     Dates: start: 20180312, end: 20180608
  9. OCUVITE [Concomitant]
     Active Substance: VITAMINS
     Dosage: 250 MG, QD
     Dates: start: 20180104, end: 20180720
  10. PRAVASTATIN. [Concomitant]
     Active Substance: PRAVASTATIN
     Dosage: 40 MG, UNK
  11. AMOXICILLIN + CLAV. POTASSIUM [Concomitant]
     Active Substance: AMOXICILLIN\CLAVULANATE POTASSIUM
     Dosage: 875-125
  12. GLIPIZIDE. [Concomitant]
     Active Substance: GLIPIZIDE
     Dosage: 10 MG, BID
     Dates: start: 20111010, end: 20180728
  13. FORMOTEROL [Concomitant]
     Active Substance: FORMOTEROL
  14. ELIQUIS [Concomitant]
     Active Substance: APIXABAN
  15. EPOETIN ALFA [Concomitant]
     Active Substance: ERYTHROPOIETIN
     Dosage: 0.5 ML, Q3WEEK
     Route: 058
     Dates: start: 20180730, end: 20180809
  16. CATAPRES [Concomitant]
     Active Substance: CLONIDINE HYDROCHLORIDE
     Dosage: 0.2 MG, Q6HRS
     Dates: start: 20180728, end: 20180809
  17. MORPHINE [Concomitant]
     Active Substance: MORPHINE
     Dosage: 5-10 MG Q4H PRN
     Route: 048
  18. UPTRAVI [Suspect]
     Active Substance: SELEXIPAG
     Dosage: 200 MCG, QD
     Route: 048
     Dates: start: 201802, end: 20180521
  19. UPTRAVI [Suspect]
     Active Substance: SELEXIPAG
     Dosage: 600 MCG, BID
     Route: 048
  20. OPSUMIT [Suspect]
     Active Substance: MACITENTAN
     Indication: PULMONARY HYPERTENSION
     Dosage: 10 MG, QD
     Route: 048
     Dates: start: 201802
  21. TORSEMIDE. [Concomitant]
     Active Substance: TORSEMIDE
     Dosage: UNK
     Dates: start: 20180414, end: 20180715
  22. ALLOPURINOL. [Concomitant]
     Active Substance: ALLOPURINOL
     Dosage: 300 MG, QD
     Route: 048
     Dates: start: 20180626, end: 20180809
  23. LANTUS [Concomitant]
     Active Substance: INSULIN GLARGINE
     Dosage: 15 U, QD
     Route: 042
  24. METOCLOPRAMIDE. [Concomitant]
     Active Substance: METOCLOPRAMIDE
     Dosage: 5 MG, TID
     Route: 048
     Dates: start: 20180728, end: 20180809
  25. METOPROLOL SUCCINATE. [Concomitant]
     Active Substance: METOPROLOL SUCCINATE
     Dosage: 225 MG, BID
     Route: 048
     Dates: start: 20180728, end: 20180809
  26. VITAMIN D3 [Concomitant]
     Active Substance: CHOLECALCIFEROL
     Dosage: UNK
     Route: 048
     Dates: start: 20161004
  27. UPTRAVI [Suspect]
     Active Substance: SELEXIPAG
     Dosage: 200 MCG, BID
     Route: 048
     Dates: start: 20180206
  28. DULERA [Concomitant]
     Active Substance: FORMOTEROL FUMARATE DIHYDRATE\MOMETASONE FUROATE
     Dosage: 100 MCG, BID, 2 PUFFS
     Dates: start: 20170928
  29. METOPROLOL TARTRATE. [Concomitant]
     Active Substance: METOPROLOL TARTRATE
     Dosage: 25 MG, UNK
  30. LANOLIN. [Concomitant]
     Active Substance: LANOLIN
     Dosage: 3 DF, TID
     Route: 061
     Dates: start: 20180718, end: 20180817
  31. UPTRAVI [Suspect]
     Active Substance: SELEXIPAG
     Indication: PULMONARY HYPERTENSION
     Dosage: 400 MCG, BID
     Route: 048
     Dates: start: 20180213
  32. BENAZEPRIL [Concomitant]
     Active Substance: BENAZEPRIL HYDROCHLORIDE
     Dosage: 40 MG, QD
     Dates: start: 20180402, end: 20180702
  33. METOPROLOL. [Concomitant]
     Active Substance: METOPROLOL
     Dosage: 25 MG, BID
     Dates: start: 20180527, end: 20180626
  34. METFORMIN [Concomitant]
     Active Substance: METFORMIN HYDROCHLORIDE
     Dosage: 850 MG, BID
     Dates: start: 20111010, end: 20180708
  35. LANTUS [Concomitant]
     Active Substance: INSULIN GLARGINE
     Dosage: UNK
     Dates: start: 20180620, end: 20180809
  36. IRON [Concomitant]
     Active Substance: IRON
     Dosage: 325 MG, QD
  37. VITAMIN C [Concomitant]
     Active Substance: ASCORBIC ACID
     Dosage: 1000 MG, BID
     Dates: start: 20170928
  38. ERGOCALCIFEROL. [Concomitant]
     Active Substance: ERGOCALCIFEROL
     Dosage: 1 DF, Q1MONTH
     Dates: start: 20180104
  39. GLYCOLAX [Concomitant]
     Active Substance: POLYETHYLENE GLYCOL 3350
     Dosage: 17 G, QD
     Route: 048
     Dates: start: 20180720, end: 20180809
  40. GUAIFENESIN. [Concomitant]
     Active Substance: GUAIFENESIN
     Dosage: 1200 MG, BID
     Route: 048
  41. ACIDOPHILUS [Concomitant]
     Active Substance: LACTOBACILLUS ACIDOPHILUS
     Route: 048
  42. OPSUMIT [Suspect]
     Active Substance: MACITENTAN
     Dosage: 10 MG, QD
     Route: 048
     Dates: start: 20180705, end: 20180809
  43. OPSUMIT [Suspect]
     Active Substance: MACITENTAN
     Dosage: 20 MG, QD
     Route: 048
     Dates: end: 20180809
  44. TORSEMIDE. [Concomitant]
     Active Substance: TORSEMIDE
     Dosage: 60 MG AM AND 60 MG PM
  45. TORSEMIDE. [Concomitant]
     Active Substance: TORSEMIDE
     Dosage: 80 MG, BID
     Dates: start: 20180718, end: 20180809
  46. SILDENAFIL. [Concomitant]
     Active Substance: SILDENAFIL
     Dosage: 20 MG, TID
     Dates: start: 201803
  47. VITAMIN D2 [Concomitant]
     Active Substance: ERGOCALCIFEROL
     Dosage: 50000 U, Q1MONTH
  48. POTASSIUM CHLORIDE. [Concomitant]
     Active Substance: POTASSIUM CHLORIDE
     Dosage: UNK
     Dates: start: 20180720, end: 20180809
  49. NORVASC [Concomitant]
     Active Substance: AMLODIPINE BESYLATE
     Dosage: 5 MG, QD
     Route: 048
     Dates: start: 20180729, end: 20180809
  50. FLUTICASONE. [Concomitant]
     Active Substance: FLUTICASONE
     Dosage: 50 MCG, BID
  51. OXYGEN. [Concomitant]
     Active Substance: OXYGEN
  52. UPTRAVI [Suspect]
     Active Substance: SELEXIPAG
     Dosage: 800 MCG, BID
     Route: 048
  53. SILDENAFIL. [Concomitant]
     Active Substance: SILDENAFIL
     Dosage: 20 MG, TID
     Route: 048
     Dates: start: 20180718, end: 20180817
  54. OMEPRAZOLE. [Concomitant]
     Active Substance: OMEPRAZOLE
     Dosage: 20 MG, QD
     Dates: start: 20180314, end: 20180708
  55. COQ10 [Concomitant]
     Active Substance: UBIDECARENONE
     Dosage: 100 MG, QD
     Dates: start: 20170928, end: 20180720
  56. POTASSIUM [Concomitant]
     Active Substance: POTASSIUM
     Dosage: 99 MG, BID
     Dates: start: 20150521, end: 20180720
  57. SPIRIVA [Concomitant]
     Active Substance: TIOTROPIUM BROMIDE MONOHYDRATE
     Dosage: 18 MCG, QD
     Dates: start: 20180104
  58. INSULIN [Concomitant]
     Active Substance: INSULIN NOS
     Dosage: 100 U/ML, UNK
  59. TIOTROPIUM [Concomitant]
     Active Substance: TIOTROPIUM
     Dosage: 20 MG, UNK
  60. HEPARIN SODIUM. [Concomitant]
     Active Substance: HEPARIN SODIUM
     Dosage: 2308.8 UNK, UNK
     Route: 042
     Dates: start: 20180728, end: 20180809
  61. HEPARIN SODIUM. [Concomitant]
     Active Substance: HEPARIN SODIUM
     Dosage: 1731.6 UNK, UNK
     Dates: start: 20180728, end: 20180809
  62. PSYLLIUM [Concomitant]
     Active Substance: PLANTAGO SEED
     Dosage: 1 DF, QD
     Dates: end: 20180720
  63. AMIODARONE [Concomitant]
     Active Substance: AMIODARONE
     Dosage: 200 MG, BID
     Route: 048
  64. BUDESONIDE. [Concomitant]
     Active Substance: BUDESONIDE
     Dosage: 0.5 MG/2ML BID

REACTIONS (40)
  - Death [Fatal]
  - Nausea [Recovered/Resolved]
  - Cardiac failure congestive [Unknown]
  - Acute kidney injury [Unknown]
  - Gangrene [Unknown]
  - Scratch [Unknown]
  - Arrhythmia [Unknown]
  - Vision blurred [Unknown]
  - Asthenia [Unknown]
  - Deep vein thrombosis [Unknown]
  - Syncope [Recovered/Resolved]
  - Fall [Unknown]
  - Hypoglycaemia [Recovered/Resolved]
  - Haematochezia [Unknown]
  - Oxygen saturation decreased [Unknown]
  - Acute left ventricular failure [Unknown]
  - Gait disturbance [Recovered/Resolved]
  - Arthralgia [Recovered/Resolved]
  - Blood creatinine abnormal [Unknown]
  - Gastrointestinal haemorrhage [Unknown]
  - Dehydration [Unknown]
  - Diarrhoea [Recovered/Resolved]
  - Pain [Recovering/Resolving]
  - Pain in extremity [Recovered/Resolved]
  - Condition aggravated [Unknown]
  - Walking distance test abnormal [Unknown]
  - Malaise [Recovering/Resolving]
  - Headache [Recovering/Resolving]
  - Blood glucose decreased [Recovered/Resolved]
  - Pulmonary hypertension [Unknown]
  - Troponin I increased [Unknown]
  - Unresponsive to stimuli [Unknown]
  - Cardiac failure acute [Unknown]
  - Weight increased [Recovering/Resolving]
  - Pain in jaw [Unknown]
  - Fluid retention [Recovering/Resolving]
  - Type 1 diabetes mellitus [Unknown]
  - Type 2 diabetes mellitus [Unknown]
  - Continuous positive airway pressure [Unknown]
  - Blood creatinine increased [Unknown]

NARRATIVE: CASE EVENT DATE: 201803
